FAERS Safety Report 8920485 (Version 1)
Quarter: 2012Q4

REPORT INFORMATION
  Report Type: 
  Country: CA (occurrence: CA)
  Receive Date: 20121122
  Receipt Date: 20121122
  Transmission Date: 20130627
  Serious: Yes (Other)
  Sender: FDA-Public Use
  Company Number: CHPA2012CA023488

PATIENT
  Age: 78 Year
  Sex: Female

DRUGS (3)
  1. MAALOX [Suspect]
     Indication: DIARRHOEA
     Dosage: Unk, PRN
     Route: 048
  2. DRUG THERAPY NOS [Concomitant]
     Indication: DIARRHOEA
     Dosage: Unk, PRN
     Dates: start: 2010
  3. DRUG THERAPY NOS [Concomitant]
     Indication: FLATULENCE

REACTIONS (5)
  - Pulmonary oedema [Recovered/Resolved]
  - Infection [Recovered/Resolved]
  - Oedema peripheral [Recovered/Resolved]
  - Oedema [Not Recovered/Not Resolved]
  - Off label use [Unknown]
